FAERS Safety Report 9549823 (Version 1)
Quarter: 2013Q3

REPORT INFORMATION
  Report Type: Spontaneous
  Country: US (occurrence: US)
  Receive Date: 20130924
  Receipt Date: 20130924
  Transmission Date: 20140515
  Serious: No
  Sender: FDA-Public Use
  Company Number: US-009507513-1309USA010976

PATIENT
  Age: 30 Year
  Sex: Male

DRUGS (9)
  1. SAPHRIS [Suspect]
     Indication: SCHIZOPHRENIA
     Dosage: 5 MG, BID
     Route: 060
  2. SAPHRIS [Suspect]
     Indication: THINKING ABNORMAL
     Dosage: 5 MG, QD
     Route: 060
  3. SAPHRIS [Suspect]
     Indication: PARANOIA
  4. SAPHRIS [Suspect]
     Indication: AFFECT LABILITY
  5. QUETIAPINE FUMARATE [Concomitant]
     Dosage: 450 MG, UNK
  6. ARIPIPRAZOLE [Concomitant]
     Dosage: 25 MG, UNK
  7. LEXAPRO [Concomitant]
     Dosage: 20 MG, UNK
  8. CLONAZEPAM [Concomitant]
  9. BUSPIRONE HYDROCHLORIDE [Concomitant]
     Dosage: 30 MG, UNK

REACTIONS (2)
  - Initial insomnia [Unknown]
  - Akathisia [Recovering/Resolving]
